FAERS Safety Report 19326144 (Version 1)
Quarter: 2021Q2

REPORT INFORMATION
  Report Type: Spontaneous
  Country: US (occurrence: US)
  Receive Date: 20210528
  Receipt Date: 20210528
  Transmission Date: 20210717
  Serious: Yes (Other)
  Sender: FDA-Public Use
  Company Number: NVSC2021US119570

PATIENT
  Age: 70 Year
  Sex: Male

DRUGS (1)
  1. TREPROSTINIL. [Suspect]
     Active Substance: TREPROSTINIL
     Indication: PULMONARY HYPERTENSION
     Dosage: 15.5 NG/KG/MIN
     Route: 058

REACTIONS (3)
  - Concomitant disease aggravated [Unknown]
  - Hypoxia [Unknown]
  - Therapy non-responder [Unknown]
